FAERS Safety Report 7473468-4 (Version None)
Quarter: 2011Q2

REPORT INFORMATION
  Report Type: 
  Country: None (occurrence: None)
  Receive Date: 20110511
  Receipt Date: 20110505
  Transmission Date: 20111010
  Serious: Yes (Death, Other)
  Sender: FDA-Public Use
  Company Number: IL-CELGENEUS-082-50794-11031854

PATIENT
  Age: 67 Year
  Sex: Female

DRUGS (1)
  1. VIDAZA [Suspect]
     Dosage: 100 MILLIGRAM
     Route: 058
     Dates: start: 20100901, end: 20110101

REACTIONS (5)
  - DYSPNOEA [None]
  - HAEMOGLOBIN DECREASED [None]
  - DEATH [None]
  - VOCAL CORD PARALYSIS [None]
  - VOCAL CORD INFLAMMATION [None]
